FAERS Safety Report 4979682-1 (Version None)
Quarter: 2006Q2

REPORT INFORMATION
  Report Type: 
  Country: None (occurrence: None)
  Receive Date: 20060418
  Receipt Date: 20060410
  Transmission Date: 20061013
  Serious: Yes (Disabling, Other)
  Sender: FDA-Public Use
  Company Number: 200610510GDS

PATIENT
  Age: 51 Year
  Sex: Male

DRUGS (2)
  1. AVELOX [Suspect]
     Indication: PNEUMONIA PRIMARY ATYPICAL
     Dosage: 400 MG, QD, ORAL
     Route: 048
     Dates: start: 20060124, end: 20060128
  2. ZOPICLONE [Concomitant]

REACTIONS (2)
  - DIPLOPIA [None]
  - INFECTIOUS MONONUCLEOSIS [None]
